FAERS Safety Report 25851229 (Version 1)
Quarter: 2025Q3

REPORT INFORMATION
  Report Type: Spontaneous
  Country: US (occurrence: US)
  Receive Date: 20250926
  Receipt Date: 20250926
  Transmission Date: 20251020
  Serious: No
  Sender: ROCHE
  Company Number: US-ROCHE-10000395481

PATIENT
  Age: 16 Year
  Sex: Male

DRUGS (7)
  1. RITUXIMAB [Suspect]
     Active Substance: RITUXIMAB
     Indication: Composite lymphoma
     Route: 065
  2. CYCLOPHOSPHAMIDE [Concomitant]
     Active Substance: CYCLOPHOSPHAMIDE
     Indication: Composite lymphoma
  3. VINCRISTINE [Concomitant]
     Active Substance: VINCRISTINE
     Indication: Composite lymphoma
  4. PREDNISONE [Concomitant]
     Active Substance: PREDNISONE
     Indication: Composite lymphoma
  5. METHOTREXATE [Concomitant]
     Active Substance: METHOTREXATE
     Indication: Composite lymphoma
  6. DOXORUBICIN [Concomitant]
     Active Substance: DOXORUBICIN
     Indication: Composite lymphoma
  7. DECADRON [Concomitant]
     Active Substance: DEXAMETHASONE
     Indication: Spinal cord compression

REACTIONS (2)
  - Off label use [Unknown]
  - No adverse event [Unknown]
